FAERS Safety Report 22354118 (Version 1)
Quarter: 2023Q2

REPORT INFORMATION
  Report Type: Spontaneous
  Country: US (occurrence: None)
  Receive Date: 20230523
  Receipt Date: 20230523
  Transmission Date: 20230722
  Serious: Yes (Hospitalization)
  Sender: FDA-Public Use
  Company Number: US-ROCHE-3354241

PATIENT
  Age: 28 Year
  Sex: Male

DRUGS (1)
  1. EVRYSDI [Suspect]
     Active Substance: RISDIPLAM
     Indication: Spinal muscular atrophy
     Dosage: 6.6.ML/ 5 MG DAILY VIA GASTROSTOMY TUBE-DOSAGE
     Route: 065

REACTIONS (3)
  - Pain [Unknown]
  - Kidney infection [Unknown]
  - Chills [Unknown]
